FAERS Safety Report 25762533 (Version 9)
Quarter: 2025Q4

REPORT INFORMATION
  Report Type: Report from Study
  Country: CA (occurrence: CA)
  Receive Date: 20250904
  Receipt Date: 20251229
  Transmission Date: 20260117
  Serious: Yes (Hospitalization, Other)
  Sender: PFIZER
  Company Number: CA-PFIZER INC-202500082333

PATIENT
  Age: 58 Year
  Sex: Male
  Weight: 69 kg

DRUGS (5)
  1. IXIFI [Suspect]
     Active Substance: INFLIXIMAB-QBTX
     Indication: Crohn^s disease
     Dosage: 600 MG, EVERY 6 WEEKS
     Route: 042
     Dates: start: 20250609
  2. IXIFI [Suspect]
     Active Substance: INFLIXIMAB-QBTX
     Dosage: 600 MG, EVERY 6 WEEKS
     Route: 042
     Dates: start: 20250721
  3. IXIFI [Suspect]
     Active Substance: INFLIXIMAB-QBTX
     Dosage: 600 MG, EVERY 5 WEEKS
     Route: 042
     Dates: start: 20250902
  4. IXIFI [Suspect]
     Active Substance: INFLIXIMAB-QBTX
     Dosage: 600 MG, AFTER 5 WEEKS AND DAY 1
     Route: 042
     Dates: start: 20251008
  5. IXIFI [Suspect]
     Active Substance: INFLIXIMAB-QBTX
     Dosage: 600 MG, AFTER 10 WEEKS
     Route: 042
     Dates: start: 20251217

REACTIONS (7)
  - Colectomy [Unknown]
  - Intestinal resection [Recovering/Resolving]
  - Gastrointestinal bacterial infection [Unknown]
  - Ileus [Not Recovered/Not Resolved]
  - Condition aggravated [Recovered/Resolved]
  - Arthralgia [Recovered/Resolved]
  - Off label use [Unknown]

NARRATIVE: CASE EVENT DATE: 20250101
